FAERS Safety Report 23815140 (Version 1)
Quarter: 2024Q2

REPORT INFORMATION
  Report Type: Spontaneous
  Country: FR (occurrence: FR)
  Receive Date: 20240503
  Receipt Date: 20240503
  Transmission Date: 20240716
  Serious: Yes (Hospitalization)
  Sender: FDA-Public Use
  Company Number: None

PATIENT
  Age: 71 Year
  Sex: Female
  Weight: 78 kg

DRUGS (3)
  1. ZOLEDRONIC ACID [Suspect]
     Active Substance: ZOLEDRONIC ACID
     Indication: Osteoporosis
     Dosage: UNK
     Route: 042
     Dates: start: 20240312, end: 20240312
  2. DARZALEX [Suspect]
     Active Substance: DARATUMUMAB
     Indication: Plasma cell myeloma
     Dosage: UNK
     Route: 042
     Dates: start: 20240312, end: 20240312
  3. LENALIDOMIDE [Suspect]
     Active Substance: LENALIDOMIDE
     Indication: Plasma cell myeloma
     Dosage: 20 MG, 1X/DAY
     Route: 048
     Dates: start: 20240312, end: 20240401

REACTIONS (4)
  - Hyperthermia [Recovered/Resolved]
  - Cholestatic liver injury [Recovering/Resolving]
  - Acute myocardial infarction [Recovering/Resolving]
  - Splenic infarction [Recovering/Resolving]

NARRATIVE: CASE EVENT DATE: 20240314
